FAERS Safety Report 24726482 (Version 1)
Quarter: 2024Q4

REPORT INFORMATION
  Report Type: Spontaneous
  Country: US (occurrence: None)
  Receive Date: 20241211
  Receipt Date: 20241211
  Transmission Date: 20250114
  Serious: Yes (Hospitalization)
  Sender: Public
  Company Number: None

PATIENT
  Sex: Female

DRUGS (3)
  1. EPOPROSTENOL [Suspect]
     Active Substance: EPOPROSTENOL
     Indication: Pulmonary arterial hypertension
     Dosage: OTHER QUANTITY : 65NG/KG/MIN;?OTHER FREQUENCY : CONTINUOUS ;?
     Route: 042
     Dates: start: 202203
  2. LETAIRIS [Concomitant]
     Active Substance: AMBRISENTAN
  3. SODIUM CHLOR INJ [Concomitant]

REACTIONS (2)
  - Abdominal distension [None]
  - Intra-abdominal fluid collection [None]
